FAERS Safety Report 8553781-X (Version None)
Quarter: 2012Q3

REPORT INFORMATION
  Report Type: 
  Country: None (occurrence: None)
  Receive Date: 20120731
  Receipt Date: 20120725
  Transmission Date: 20120928
  Serious: Yes (Hospitalization)
  Sender: FDA-Public Use
  Company Number: US-GLAXOSMITHKLINE-B0819121A

PATIENT
  Age: 71 Year
  Sex: Female

DRUGS (3)
  1. EPOPROSTENOL SODIUM [Suspect]
  2. LETAIRIS [Suspect]
     Indication: PRODUCT USED FOR UNKNOWN INDICATION
     Route: 048
     Dates: start: 20100514
  3. FLOLAN [Suspect]

REACTIONS (1)
  - THERAPY REGIMEN CHANGED [None]
